FAERS Safety Report 25718864 (Version 2)
Quarter: 2025Q4

REPORT INFORMATION
  Report Type: Spontaneous
  Country: EU (occurrence: EU)
  Receive Date: 20250823
  Receipt Date: 20251103
  Transmission Date: 20260118
  Serious: Yes (Death, Hospitalization)
  Sender: SANDOZ
  Company Number: EU-ASTRAZENECA-202508EEA005269DE

PATIENT
  Age: 60 Year
  Sex: Female

DRUGS (6)
  1. FULVESTRANT [Suspect]
     Active Substance: FULVESTRANT
     Indication: Breast cancer
     Dosage: 500 MG, 28D (500 MG DAY 1 OF 28 DAY CYCLE)
     Route: 030
     Dates: start: 20220119, end: 20220217
  2. LETROZOLE [Suspect]
     Active Substance: LETROZOLE
     Indication: Breast cancer
     Dosage: 2.5 MG, QD (TABLET)
     Route: 048
  3. PALBOCICLIB [Suspect]
     Active Substance: PALBOCICLIB
     Indication: Breast cancer
     Dosage: 125 MG, QD
     Route: 048
     Dates: start: 20210924, end: 20220309
  4. NEBIVOLOL [Concomitant]
     Active Substance: NEBIVOLOL
     Indication: Hypertension
     Dosage: UNK
     Route: 048
  5. RAMIPRIL [Concomitant]
     Active Substance: RAMIPRIL
     Indication: Hypertension
     Dosage: UNK
     Route: 048
  6. SYMBICORT [Concomitant]
     Active Substance: BUDESONIDE\FORMOTEROL FUMARATE DIHYDRATE
     Indication: Asthma
     Dosage: UNK (SYMBICORT AEROSPHERE)
     Route: 055

REACTIONS (3)
  - Death [Fatal]
  - Trigeminal neuralgia [Recovered/Resolved]
  - Off label use [Unknown]

NARRATIVE: CASE EVENT DATE: 20220224
